FAERS Safety Report 4879658-9 (Version None)
Quarter: 2006Q1

REPORT INFORMATION
  Report Type: 
  Country: None (occurrence: None)
  Receive Date: 20060111
  Receipt Date: 20060105
  Transmission Date: 20060701
  Serious: Yes (Hospitalization)
  Sender: FDA-Public Use
  Company Number: L05-GER-05761-01

PATIENT
  Age: 68 Year
  Sex: Female

DRUGS (6)
  1. CITALOPRAM HYDROBROMIDE [Suspect]
     Indication: DEPRESSION
     Dosage: 40 MG
  2. CITALOPRAM HYDROBROMIDE [Suspect]
     Indication: DEPRESSION
     Dosage: 20 MG
  3. ANTRA MUPS (OMEPRAZOLE MAGNESIUM) [Suspect]
     Indication: GASTRODUODENAL ULCER
     Dosage: 40 MG
  4. RAMIPRIL [Suspect]
     Indication: HYPERTENSION
     Dosage: 10 MG
  5. METOPROLOL TARTRATE [Suspect]
     Indication: HYPERTENSION
  6. METOPROLOL TARTRATE [Suspect]
     Indication: HYPERTENSION

REACTIONS (4)
  - APATHY [None]
  - DRUG INTERACTION [None]
  - INAPPROPRIATE ANTIDIURETIC HORMONE SECRETION [None]
  - SOMNOLENCE [None]
